FAERS Safety Report 16260631 (Version 1)
Quarter: 2019Q2

REPORT INFORMATION
  Report Type: Spontaneous
  Country: NL (occurrence: NL)
  Receive Date: 20190501
  Receipt Date: 20190501
  Transmission Date: 20190711
  Serious: Yes (Other)
  Sender: FDA-Public Use
  Company Number: NL-MYLANLABS-2019M1040971

PATIENT
  Age: 76 Year
  Sex: Female
  Weight: 63 kg

DRUGS (3)
  1. PARACETAMOL [Concomitant]
     Active Substance: ACETAMINOPHEN
     Dosage: UNK
  2. AMITRIPTYLINE [Concomitant]
     Active Substance: AMITRIPTYLINE
     Dosage: UNK
  3. BACLOFEN. [Suspect]
     Active Substance: BACLOFEN
     Indication: MUSCLE SPASMS
     Dosage: 0.5 MILLIGRAM, QD (1X0,5 MG)
     Route: 048
     Dates: start: 20180701, end: 20181219

REACTIONS (4)
  - Micturition disorder [Recovering/Resolving]
  - Visual impairment [Recovering/Resolving]
  - Photopsia [Recovering/Resolving]
  - Syncope [Recovering/Resolving]

NARRATIVE: CASE EVENT DATE: 20180801
